FAERS Safety Report 17678991 (Version 3)
Quarter: 2020Q2

REPORT INFORMATION
  Report Type: Spontaneous
  Country: US (occurrence: US)
  Receive Date: 20200417
  Receipt Date: 20200621
  Transmission Date: 20200714
  Serious: No
  Sender: FDA-Public Use
  Company Number: US-GLAXOSMITHKLINE-US2020AMR065322

PATIENT
  Sex: Female

DRUGS (2)
  1. ZEJULA [Suspect]
     Active Substance: NIRAPARIB
     Indication: OVARIAN CANCER
     Dosage: 200 MG
     Dates: start: 20200319
  2. ZEJULA [Suspect]
     Active Substance: NIRAPARIB
     Dosage: 100 MG, QD
     Dates: start: 20200407, end: 20200430

REACTIONS (6)
  - Palpitations [Unknown]
  - Insomnia [Unknown]
  - Dyspnoea exertional [Unknown]
  - Heart rate increased [Unknown]
  - Off label use [Unknown]
  - Anxiety [Unknown]
